FAERS Safety Report 16239719 (Version 2)
Quarter: 2019Q2

REPORT INFORMATION
  Report Type: Spontaneous
  Country: IT (occurrence: IT)
  Receive Date: 20190425
  Receipt Date: 20190502
  Transmission Date: 20190711
  Serious: Yes (Death, Hospitalization)
  Sender: FDA-Public Use
  Company Number: IT-TAKEDA-2019TEU004932

PATIENT
  Sex: Female

DRUGS (1)
  1. COLCHICINE. [Suspect]
     Active Substance: COLCHICINE
     Indication: PRODUCT USED FOR UNKNOWN INDICATION
     Dosage: UNK
     Route: 065

REACTIONS (2)
  - Accidental exposure to product [Fatal]
  - Death [Fatal]
